FAERS Safety Report 12743539 (Version 1)
Quarter: 2016Q3

REPORT INFORMATION
  Report Type: Spontaneous
  Country: PH (occurrence: PH)
  Receive Date: 20160914
  Receipt Date: 20160914
  Transmission Date: 20161109
  Serious: Yes (Hospitalization, Other)
  Sender: FDA-Public Use
  Company Number: PH-ASTELLAS-2016US035158

PATIENT
  Age: 6 Decade
  Sex: Male

DRUGS (1)
  1. TARCEVA [Suspect]
     Active Substance: ERLOTINIB HYDROCHLORIDE
     Indication: NON-SMALL CELL LUNG CANCER METASTATIC
     Route: 048

REACTIONS (3)
  - Hypothyroidism [Unknown]
  - Pneumonia [Unknown]
  - Rash [Not Recovered/Not Resolved]
